FAERS Safety Report 8262834-5 (Version None)
Quarter: 2012Q2

REPORT INFORMATION
  Report Type: 
  Country: None (occurrence: None)
  Receive Date: 20120405
  Receipt Date: 20120330
  Transmission Date: 20120825
  Serious: Yes (Death, Hospitalization)
  Sender: FDA-Public Use
  Company Number: US-GLAXOSMITHKLINE-A0750967A

PATIENT
  Age: 64 Year
  Sex: Male
  Weight: 102.3 kg

DRUGS (12)
  1. VOLTAREN [Concomitant]
  2. ACCUPRIL [Concomitant]
  3. OMEPRAZOLE [Concomitant]
  4. GEMFIBROZIL [Concomitant]
  5. AVANDIA [Suspect]
     Indication: TYPE 2 DIABETES MELLITUS
     Dosage: 8MG PER DAY
     Route: 048
     Dates: start: 20000101, end: 20070301
  6. LIPITOR [Concomitant]
  7. ZYRTEC [Concomitant]
  8. TRICOR [Concomitant]
  9. AVAPRO [Concomitant]
  10. PRILOSEC [Concomitant]
  11. GLYBURIDE [Concomitant]
  12. QUINAPRIL [Concomitant]

REACTIONS (1)
  - MYOCARDIAL INFARCTION [None]
